FAERS Safety Report 23324690 (Version 2)
Quarter: 2024Q1

REPORT INFORMATION
  Report Type: Report from Study
  Country: US (occurrence: US)
  Receive Date: 20231221
  Receipt Date: 20240119
  Transmission Date: 20240409
  Serious: Yes (Other)
  Sender: FDA-Public Use
  Company Number: US-AUROBINDO-AUR-APL-2023-078917

PATIENT
  Age: 59 Year
  Sex: Female

DRUGS (1)
  1. CLOZAPINE [Suspect]
     Active Substance: CLOZAPINE
     Indication: Abnormal behaviour
     Dosage: 350 MILLIGRAM, ONCE A DAY
     Route: 065

REACTIONS (2)
  - Asterixis [Unknown]
  - Myoclonus [Unknown]
